FAERS Safety Report 12806454 (Version 2)
Quarter: 2016Q4

REPORT INFORMATION
  Report Type: Spontaneous
  Country: LB (occurrence: LB)
  Receive Date: 20161004
  Receipt Date: 20161027
  Transmission Date: 20170207
  Serious: Yes (Death, Life-Threatening, Other)
  Sender: FDA-Public Use
  Company Number: LB-NOVOPROD-512058

PATIENT
  Sex: Female
  Weight: 65 kg

DRUGS (1)
  1. NOVOSEVEN [Suspect]
     Active Substance: COAGULATION FACTOR VIIA RECOMBINANT HUMAN
     Indication: POSTPARTUM HAEMORRHAGE
     Dosage: 90?G/KG (5 DOSES OF 6 MG EACH)
     Route: 065

REACTIONS (5)
  - Renal impairment [Unknown]
  - Shock haemorrhagic [Unknown]
  - Liver disorder [Unknown]
  - Death [Fatal]
  - Off label use [Unknown]
